FAERS Safety Report 24997270 (Version 1)
Quarter: 2025Q1

REPORT INFORMATION
  Report Type: Report from Study
  Country: US (occurrence: US)
  Receive Date: 20250221
  Receipt Date: 20250221
  Transmission Date: 20250408
  Serious: Yes (Other)
  Sender: ABBVIE
  Company Number: US-ABBVIE-5830253

PATIENT
  Age: 59 Year
  Sex: Female
  Weight: 77.11 kg

DRUGS (5)
  1. RINVOQ [Suspect]
     Active Substance: UPADACITINIB
     Indication: Colitis ulcerative
     Dosage: FOR 8 WEEK
     Route: 048
     Dates: start: 20240404, end: 202406
  2. RINVOQ [Suspect]
     Active Substance: UPADACITINIB
     Indication: Colitis ulcerative
     Dosage: FORM STRENGTH: 30 MG
     Route: 048
     Dates: start: 202406, end: 202412
  3. RINVOQ [Suspect]
     Active Substance: UPADACITINIB
     Indication: Colitis ulcerative
     Dosage: FORM STRENGTH: 30 MG
     Route: 048
  4. MESALAMINE [Concomitant]
     Active Substance: MESALAMINE
     Indication: Product used for unknown indication
  5. HYDROCORTISONE [Concomitant]
     Active Substance: HYDROCORTISONE
     Indication: Product used for unknown indication

REACTIONS (19)
  - Trigger finger [Unknown]
  - Weight increased [Not Recovered/Not Resolved]
  - Arthralgia [Recovered/Resolved]
  - Frequent bowel movements [Unknown]
  - Flatulence [Unknown]
  - Defaecation urgency [Unknown]
  - Defaecation urgency [Recovered/Resolved]
  - Asthenia [Unknown]
  - Fatigue [Not Recovered/Not Resolved]
  - Diarrhoea [Not Recovered/Not Resolved]
  - Haematochezia [Unknown]
  - Constipation [Unknown]
  - Haematochezia [Recovered/Resolved]
  - Abdominal pain [Unknown]
  - Respiratory tract congestion [Unknown]
  - Oropharyngeal pain [Unknown]
  - Arthralgia [Unknown]
  - Mucous stools [Unknown]
  - Ear discomfort [Unknown]

NARRATIVE: CASE EVENT DATE: 20240101
